FAERS Safety Report 9821489 (Version 2)
Quarter: 2014Q1

REPORT INFORMATION
  Report Type: Spontaneous
  Country: US (occurrence: US)
  Receive Date: 20140116
  Receipt Date: 20140116
  Transmission Date: 20141002
  Serious: No
  Sender: FDA-Public Use
  Company Number: US-GILEAD-2011-0035426

PATIENT
  Sex: Female

DRUGS (1)
  1. LETAIRIS [Suspect]
     Indication: PRODUCT USED FOR UNKNOWN INDICATION
     Route: 048
     Dates: start: 20110107

REACTIONS (8)
  - Malaise [Unknown]
  - Local swelling [Unknown]
  - Hot flush [Unknown]
  - Headache [Unknown]
  - Dyspnoea [Unknown]
  - Flushing [Unknown]
  - Constipation [Unknown]
  - Sinus disorder [Unknown]
